FAERS Safety Report 21615303 (Version 1)
Quarter: 2022Q4

REPORT INFORMATION
  Report Type: Spontaneous
  Country: CN (occurrence: None)
  Receive Date: 20221118
  Receipt Date: 20221118
  Transmission Date: 20230113
  Serious: Yes (Other)
  Sender: FDA-Public Use
  Company Number: 2022A377995

PATIENT
  Age: 23370 Day
  Sex: Female

DRUGS (12)
  1. OSIMERTINIB MESYLATE [Suspect]
     Active Substance: OSIMERTINIB MESYLATE
     Indication: Squamous cell carcinoma of lung
     Route: 048
     Dates: start: 20220308, end: 20220308
  2. OSIMERTINIB MESYLATE [Suspect]
     Active Substance: OSIMERTINIB MESYLATE
     Indication: Metastases to central nervous system
     Route: 048
     Dates: start: 20220308, end: 20220308
  3. OSIMERTINIB MESYLATE [Suspect]
     Active Substance: OSIMERTINIB MESYLATE
     Indication: Metastases to liver
     Route: 048
     Dates: start: 20220308, end: 20220308
  4. OSIMERTINIB MESYLATE [Suspect]
     Active Substance: OSIMERTINIB MESYLATE
     Indication: Metastases to bone
     Route: 048
     Dates: start: 20220308, end: 20220308
  5. CARBOPLATIN [Suspect]
     Active Substance: CARBOPLATIN
     Indication: Squamous cell carcinoma of lung
     Route: 041
     Dates: start: 20220308, end: 20220308
  6. CARBOPLATIN [Suspect]
     Active Substance: CARBOPLATIN
     Indication: Metastases to central nervous system
     Route: 041
     Dates: start: 20220308, end: 20220308
  7. CARBOPLATIN [Suspect]
     Active Substance: CARBOPLATIN
     Indication: Metastases to liver
     Route: 041
     Dates: start: 20220308, end: 20220308
  8. CARBOPLATIN [Suspect]
     Active Substance: CARBOPLATIN
     Indication: Metastases to bone
     Route: 041
     Dates: start: 20220308, end: 20220308
  9. PACLITAXEL [Suspect]
     Active Substance: PACLITAXEL
     Indication: Lung squamous cell carcinoma metastatic
     Route: 041
     Dates: start: 20220308, end: 20220308
  10. PACLITAXEL [Suspect]
     Active Substance: PACLITAXEL
     Indication: Metastases to central nervous system
     Route: 041
     Dates: start: 20220308, end: 20220308
  11. PACLITAXEL [Suspect]
     Active Substance: PACLITAXEL
     Indication: Metastases to liver
     Route: 041
     Dates: start: 20220308, end: 20220308
  12. PACLITAXEL [Suspect]
     Active Substance: PACLITAXEL
     Indication: Metastases to bone
     Route: 041
     Dates: start: 20220308, end: 20220308

REACTIONS (1)
  - Myelosuppression [Recovering/Resolving]

NARRATIVE: CASE EVENT DATE: 20220402
